FAERS Safety Report 12222730 (Version 1)
Quarter: 2016Q1

REPORT INFORMATION
  Report Type: Spontaneous
  Country: BR (occurrence: BR)
  Receive Date: 20160330
  Receipt Date: 20160330
  Transmission Date: 20160526
  Serious: Yes (Other)
  Sender: FDA-Public Use
  Company Number: BR-BAUSCH-BL-2016-007188

PATIENT
  Sex: Female

DRUGS (1)
  1. DICLOFENAC SODIUM. [Suspect]
     Active Substance: DICLOFENAC SODIUM
     Indication: UTERINE SPASM
     Route: 065

REACTIONS (4)
  - Ductus arteriosus stenosis foetal [Recovered/Resolved]
  - Tricuspid valve incompetence [Recovered/Resolved]
  - Dilatation ventricular [Recovered/Resolved]
  - Exposure during pregnancy [Unknown]
